FAERS Safety Report 5660503-9 (Version None)
Quarter: 2008Q1

REPORT INFORMATION
  Report Type: 
  Country: None (occurrence: None)
  Receive Date: 20080306
  Receipt Date: 20080226
  Transmission Date: 20080703
  Serious: Yes (Other)
  Sender: FDA-Public Use
  Company Number: SPV1-2008-00335

PATIENT
  Age: 64 Year
  Sex: Male

DRUGS (10)
  1. FOSRENOL [Suspect]
     Indication: HYPERPHOSPHATAEMIA
     Dosage: 750 MG, 3X/DAY: TID, ORAL
     Route: 048
     Dates: start: 20071001
  2. NORVASC [Concomitant]
  3. NASONEX [Concomitant]
  4. ASPIRIN [Concomitant]
  5. MAVIK [Concomitant]
  6. CRESTOR [Concomitant]
  7. LIPIDIL [Concomitant]
  8. ARANESP [Concomitant]
  9. PLAVIX [Concomitant]
  10. PANTOLOC                 /01263201/ (PANTOPRAZOLE) [Concomitant]

REACTIONS (2)
  - ENTEROBACTER INFECTION [None]
  - PERITONITIS [None]
